FAERS Safety Report 10725191 (Version 1)
Quarter: 2015Q1

REPORT INFORMATION
  Report Type: Report from Study
  Country: IN (occurrence: IN)
  Receive Date: 20150120
  Receipt Date: 20150120
  Transmission Date: 20150721
  Serious: Yes (Other)
  Sender: FDA-Public Use
  Company Number: IN-SA-2015SA006442

PATIENT
  Age: 72 Year
  Sex: Male

DRUGS (4)
  1. CABAZITAXEL [Suspect]
     Active Substance: CABAZITAXEL
     Indication: PROSTATE CANCER METASTATIC
     Dosage: OVER 1 HOUR WEEKLY
     Route: 042
  2. CABAZITAXEL [Suspect]
     Active Substance: CABAZITAXEL
     Indication: PROSTATE CANCER METASTATIC
     Dosage: OVER 1 HOUR WEEKLY
     Route: 042
  3. CABAZITAXEL [Suspect]
     Active Substance: CABAZITAXEL
     Indication: PROSTATE CANCER METASTATIC
     Dosage: OVER 1 HOUR WEEKLY
     Route: 042
  4. DOCETAXEL. [Concomitant]
     Active Substance: DOCETAXEL

REACTIONS (14)
  - Hyponatraemia [Unknown]
  - Nausea [Unknown]
  - Muscular weakness [Recovering/Resolving]
  - Anaemia [Unknown]
  - Thrombocytopenia [Unknown]
  - Oedema peripheral [Unknown]
  - Dysgeusia [Unknown]
  - Neutropenia [Unknown]
  - Fatigue [Unknown]
  - Peripheral sensorimotor neuropathy [Recovering/Resolving]
  - Decreased appetite [Unknown]
  - Urinary tract infection [Unknown]
  - Diarrhoea [Unknown]
  - Hyperkalaemia [Unknown]
